FAERS Safety Report 17807132 (Version 2)
Quarter: 2021Q1

REPORT INFORMATION
  Report Type: Spontaneous
  Country: FR (occurrence: FR)
  Receive Date: 20200520
  Receipt Date: 20210108
  Transmission Date: 20210419
  Serious: Yes (Disabling, Other)
  Sender: FDA-Public Use
  Company Number: FR-LEO PHARMA-329678

PATIENT
  Age: 27 Year
  Sex: Female
  Weight: 60 kg

DRUGS (3)
  1. TRIDESONIT [Suspect]
     Active Substance: DESONIDE
     Indication: ECZEMA
     Route: 003
     Dates: start: 20150101, end: 201909
  2. PROTOPIC [Suspect]
     Active Substance: TACROLIMUS
     Indication: ECZEMA
     Route: 003
     Dates: start: 20150101, end: 201909
  3. NERISONE C [Suspect]
     Active Substance: CHLORQUINALDOL\DIFLUCORTOLONE
     Indication: ECZEMA
     Route: 003
     Dates: start: 20150101, end: 201909

REACTIONS (3)
  - Red man syndrome [Recovered/Resolved with Sequelae]
  - Dermatitis allergic [Recovered/Resolved with Sequelae]
  - Condition aggravated [Recovered/Resolved]

NARRATIVE: CASE EVENT DATE: 20190919
